FAERS Safety Report 4441073-X (Version None)
Quarter: 2004Q3

REPORT INFORMATION
  Report Type: 
  Country: None (occurrence: None)
  Receive Date: 20040830
  Receipt Date: 20040714
  Transmission Date: 20050211
  Serious: Yes (Life-Threatening, Hospitalization)
  Sender: FDA-Public Use
  Company Number: 04P-163-0266884-00

PATIENT
  Age: 60 Year
  Sex: Male

DRUGS (1)
  1. DEPAKOTE ER [Suspect]
     Indication: HICCUPS
     Dosage: 250 MG, ONCE, PER ORAL
     Route: 048
     Dates: start: 20040702, end: 20040702

REACTIONS (5)
  - ALANINE AMINOTRANSFERASE INCREASED [None]
  - AMMONIA INCREASED [None]
  - ASPARTATE AMINOTRANSFERASE INCREASED [None]
  - COMA HEPATIC [None]
  - CONFUSIONAL STATE [None]
